FAERS Safety Report 17427767 (Version 1)
Quarter: 2020Q1

REPORT INFORMATION
  Report Type: Spontaneous
  Country: JP (occurrence: JP)
  Receive Date: 20200218
  Receipt Date: 20200218
  Transmission Date: 20200409
  Serious: Yes (Other)
  Sender: FDA-Public Use
  Company Number: NVSJ2020JP001817

PATIENT
  Sex: Male

DRUGS (2)
  1. NEORAL [Suspect]
     Active Substance: CYCLOSPORINE
     Dosage: UNK
     Route: 048
  2. NEORAL [Suspect]
     Active Substance: CYCLOSPORINE
     Indication: PRURIGO
     Dosage: UNK
     Route: 048

REACTIONS (6)
  - Lymphadenopathy [Recovered/Resolved]
  - Disease recurrence [Unknown]
  - Lymphoma [Recovered/Resolved]
  - Eosinophil count increased [Recovered/Resolved]
  - Product use in unapproved indication [Unknown]
  - Prurigo [Unknown]
